FAERS Safety Report 4848659-9 (Version None)
Quarter: 2005Q4

REPORT INFORMATION
  Report Type: 
  Country: None (occurrence: None)
  Receive Date: 20051206
  Receipt Date: 20051122
  Transmission Date: 20060501
  Serious: Yes (Hospitalization)
  Sender: FDA-Public Use
  Company Number: BR-2005-024103

PATIENT
  Age: 49 Year
  Sex: Female

DRUGS (4)
  1. BETAFERON (INTERFERON BETA - 1B) INJECTION, 250UG [Suspect]
     Dosage: 8 MIU, SUBCUTANEOUS
     Route: 058
     Dates: start: 20050923
  2. TEGRETOL [Concomitant]
  3. NEUROTRIM [Concomitant]
  4. SERENATA (SERTRALINE) [Concomitant]

REACTIONS (3)
  - HEADACHE [None]
  - INJECTION SITE BRUISING [None]
  - INJECTION SITE ERYTHEMA [None]
